FAERS Safety Report 5276230-6 (Version None)
Quarter: 2007Q1

REPORT INFORMATION
  Report Type: 
  Country: None (occurrence: None)
  Receive Date: 20070326
  Receipt Date: 20070315
  Transmission Date: 20070707
  Serious: Yes (Hospitalization)
  Sender: FDA-Public Use
  Company Number: FR-BOEHRINGER INGELHEIM PHARMACEUTICALS, INC.-2007-FF-00351FF

PATIENT
  Age: 62 Year
  Sex: Male

DRUGS (2)
  1. VIRAMUNE [Suspect]
     Indication: HIV INFECTION
     Route: 048
     Dates: start: 20070115, end: 20070216
  2. TRUVADA [Suspect]
     Indication: HIV INFECTION
     Dates: start: 20070115, end: 20070216

REACTIONS (5)
  - ASPARTATE AMINOTRANSFERASE INCREASED [None]
  - BLOOD CREATININE INCREASED [None]
  - EOSINOPHILIA [None]
  - HYPERSENSITIVITY [None]
  - RASH MACULO-PAPULAR [None]
